FAERS Safety Report 8214529-1 (Version None)
Quarter: 2012Q1

REPORT INFORMATION
  Report Type: 
  Country: None (occurrence: None)
  Receive Date: 20120316
  Receipt Date: 20120306
  Transmission Date: 20120608
  Serious: Yes (Hospitalization)
  Sender: FDA-Public Use
  Company Number: US-JNJFOC-20120303369

PATIENT
  Sex: Female
  Weight: 46.27 kg

DRUGS (2)
  1. NAPROXEN [Suspect]
     Indication: RHEUMATOID ARTHRITIS
     Route: 048
     Dates: end: 20111001
  2. REMICADE [Suspect]
     Indication: RHEUMATOID ARTHRITIS
     Route: 042

REACTIONS (6)
  - RENAL CYST [None]
  - CARDIAC VALVE DISEASE [None]
  - ULCER [None]
  - ARTERIOSCLEROSIS [None]
  - RHEUMATOID ARTHRITIS [None]
  - FAECES DISCOLOURED [None]
